FAERS Safety Report 4975026-X (Version None)
Quarter: 2006Q2

REPORT INFORMATION
  Report Type: 
  Country: None (occurrence: None)
  Receive Date: 20060418
  Receipt Date: 20060407
  Transmission Date: 20061013
  Serious: Yes (Life-Threatening, Hospitalization, Congenital Anomaly)
  Sender: FDA-Public Use
  Company Number: DE-JNJFOC-20060200643

PATIENT
  Sex: Male
  Weight: 2.62 kg

DRUGS (2)
  1. TOPAMAX [Suspect]
     Indication: EPILEPSY
  2. LAMICTAL [Suspect]
     Indication: DRUG USE FOR UNKNOWN INDICATION

REACTIONS (8)
  - ATRIOVENTRICULAR SEPTAL DEFECT [None]
  - HEART DISEASE CONGENITAL [None]
  - KIDNEY MALFORMATION [None]
  - LIMB MALFORMATION [None]
  - OESOPHAGEAL ATRESIA [None]
  - SPINE MALFORMATION [None]
  - TRACHEAL STENOSIS [None]
  - TRACHEO-OESOPHAGEAL FISTULA [None]
